FAERS Safety Report 10150938 (Version 1)
Quarter: 2014Q2

REPORT INFORMATION
  Report Type: Spontaneous
  Country: US (occurrence: US)
  Receive Date: 20140502
  Receipt Date: 20140502
  Transmission Date: 20141212
  Serious: No
  Sender: FDA-Public Use
  Company Number: US-PFIZER INC-2014117487

PATIENT
  Age: 73 Year
  Sex: Male

DRUGS (5)
  1. XALKORI [Suspect]
     Indication: LUNG CANCER METASTATIC
     Dosage: 250 MG, 2X/DAY
  2. XALKORI [Suspect]
     Dosage: 250 MG, 1X/DAY
  3. XALKORI [Suspect]
     Dosage: 500 MG, 1X/DAY (ONCE IN THE MORNING AND ONCE IN THE EVENING)
  4. TURMERIC [Concomitant]
     Dosage: UNK
  5. ATORVASTATIN [Concomitant]

REACTIONS (4)
  - Disease progression [Unknown]
  - Lung cancer metastatic [Unknown]
  - Heart rate decreased [Unknown]
  - Hypotension [Recovered/Resolved]
